FAERS Safety Report 8401810-6 (Version None)
Quarter: 2012Q2

REPORT INFORMATION
  Report Type: 
  Country: None (occurrence: None)
  Receive Date: 20120529
  Receipt Date: 20090710
  Transmission Date: 20120825
  Serious: Yes (Death)
  Sender: FDA-Public Use
  Company Number: 005131

PATIENT
  Age: 91 Year
  Sex: Male

DRUGS (4)
  1. ROCEPHIN [Concomitant]
  2. CALSLOT (MANIDIPIN EHYDROCHLORIDE) [Concomitant]
  3. PLETAL [Suspect]
     Indication: PERIPHERAL ARTERIAL OCCLUSIVE DISEASE
     Dosage: 100 MG, BID, ORAL
     Route: 048
     Dates: start: 20080627, end: 20081121
  4. MEROPEN (MEROPENEM) [Concomitant]

REACTIONS (3)
  - GASTROINTESTINAL HAEMORRHAGE [None]
  - PNEUMONIA [None]
  - DEMENTIA [None]
